FAERS Safety Report 16467705 (Version 2)
Quarter: 2019Q3

REPORT INFORMATION
  Report Type: Spontaneous
  Country: PL (occurrence: PL)
  Receive Date: 20190624
  Receipt Date: 20190916
  Transmission Date: 20191004
  Serious: Yes (Hospitalization, Other)
  Sender: FDA-Public Use
  Company Number: PL-CPL-001069

PATIENT
  Age: 96 Year
  Sex: Male

DRUGS (2)
  1. CITALOPRAM [Suspect]
     Active Substance: CITALOPRAM HYDROBROMIDE
     Indication: DEPRESSION
     Route: 065
  2. DONEPEZIL. [Suspect]
     Active Substance: DONEPEZIL
     Indication: DEPRESSION
     Route: 065

REACTIONS (6)
  - Dizziness [Unknown]
  - Bradycardia [Unknown]
  - Electrocardiogram QT prolonged [Unknown]
  - Asthenia [Unknown]
  - Hiatus hernia [Unknown]
  - Condition aggravated [Unknown]
